FAERS Safety Report 6962313-9 (Version None)
Quarter: 2010Q3

REPORT INFORMATION
  Report Type: 
  Country: None (occurrence: None)
  Receive Date: 20100902
  Receipt Date: 20100823
  Transmission Date: 20110219
  Serious: Yes (Death, Hospitalization, Other)
  Sender: FDA-Public Use
  Company Number: NO-ELI_LILLY_AND_COMPANY-NO201008006796

PATIENT
  Sex: Male

DRUGS (7)
  1. ZYPADHERA [Suspect]
     Indication: SCHIZOPHRENIA
     Dosage: 210 MG, UNKNOWN
     Route: 065
  2. ZYPREXA [Suspect]
     Dosage: 10 MG, UNKNOWN
     Route: 065
  3. CLOZAPINE [Concomitant]
     Dosage: 700 MG, DAILY (1/D)
     Route: 065
  4. LITHIONIT [Concomitant]
     Dosage: 42 MG, 2/D
     Route: 065
  5. TRUXAL [Concomitant]
     Dosage: 25 MG, 2/D
     Route: 065
  6. METFORMIN [Concomitant]
     Dosage: 1000 MG, 3/D
     Route: 065
  7. HALDOL [Concomitant]
     Dosage: 40 MG, UNKNOWN
     Route: 042

REACTIONS (7)
  - CONFUSIONAL STATE [None]
  - DEATH [None]
  - GENERAL PHYSICAL HEALTH DETERIORATION [None]
  - NERVOUS SYSTEM DISORDER [None]
  - NEUROLEPTIC MALIGNANT SYNDROME [None]
  - PNEUMONIA BACTERIAL [None]
  - WEIGHT DECREASED [None]
